FAERS Safety Report 16839457 (Version 1)
Quarter: 2019Q3

REPORT INFORMATION
  Report Type: Spontaneous
  Country: US (occurrence: US)
  Receive Date: 20190923
  Receipt Date: 20190923
  Transmission Date: 20191005
  Serious: No
  Sender: FDA-Public Use
  Company Number: US-PFIZER INC-2019403481

PATIENT
  Sex: Female

DRUGS (2)
  1. EFFEXOR XR [Suspect]
     Active Substance: VENLAFAXINE HYDROCHLORIDE
     Dosage: 37.5 MG, UNK (EVERY 2 DAYS FOR A WEEK)
  2. EFFEXOR XR [Suspect]
     Active Substance: VENLAFAXINE HYDROCHLORIDE
     Indication: NEOPLASM MALIGNANT
     Dosage: UNK
     Dates: start: 2002

REACTIONS (8)
  - Off label use [Unknown]
  - Paraesthesia [Unknown]
  - Feeling abnormal [Unknown]
  - Product dose omission [Unknown]
  - Hyperhidrosis [Unknown]
  - Dizziness [Unknown]
  - Product use in unapproved indication [Unknown]
  - Nausea [Unknown]
